FAERS Safety Report 4661114-4 (Version None)
Quarter: 2005Q2

REPORT INFORMATION
  Report Type: 
  Country: None (occurrence: None)
  Receive Date: 20050511
  Receipt Date: 20050420
  Transmission Date: 20051028
  Serious: Yes (Disabling)
  Sender: FDA-Public Use
  Company Number: 2005AP000250

PATIENT
  Age: 58 Year
  Sex: Male

DRUGS (6)
  1. APO-LEVOCARB CR     (LEVODOPA/CARBIDOPA) [Suspect]
     Indication: PARKINSON'S DISEASE
     Dosage: 1 TAB; QID; PO
     Route: 048
     Dates: start: 20050303, end: 20050319
  2. MIRAPEX [Concomitant]
  3. NOVO-METOPROL [Concomitant]
  4. ADALAT [Concomitant]
  5. MICARDIS [Concomitant]
  6. COMTAN [Concomitant]

REACTIONS (5)
  - ABASIA [None]
  - DRUG INEFFECTIVE [None]
  - FATIGUE [None]
  - LETHARGY [None]
  - MUSCULOSKELETAL STIFFNESS [None]
